FAERS Safety Report 4283391-4 (Version None)
Quarter: 2004Q1

REPORT INFORMATION
  Report Type: 
  Country: None (occurrence: None)
  Receive Date: 20040115
  Receipt Date: 20030826
  Transmission Date: 20041129
  Serious: Yes (Death)
  Sender: FDA-Public Use
  Company Number: US-JNJFOC-20030805275

PATIENT
  Age: 76 Year
  Sex: Male
  Weight: 75.7507 kg

DRUGS (14)
  1. DOXIL [Suspect]
     Indication: LYMPHOMA
     Dosage: 30 MG, INTRAVENOUS
     Route: 042
     Dates: start: 20021016, end: 20021126
  2. CYTOXAN [Concomitant]
  3. VINCRISTINE [Concomitant]
  4. PREDNISONE [Concomitant]
  5. GLUCOPHAGE [Concomitant]
  6. PEPCID [Concomitant]
  7. PERICOLACE (PERI-COLACE) [Concomitant]
  8. MS CONTIN [Concomitant]
  9. NEURONTIN [Concomitant]
  10. METOPROLOL [Concomitant]
  11. VITAMIN C (ASCORBIC ACID) [Concomitant]
  12. MULTI-VITAMINS [Concomitant]
  13. ZINC SULFATE [Concomitant]
  14. ZINC SULFATE [Concomitant]

REACTIONS (1)
  - DISEASE PROGRESSION [None]
